FAERS Safety Report 7612366-X (Version None)
Quarter: 2011Q3

REPORT INFORMATION
  Report Type: 
  Country: None (occurrence: None)
  Receive Date: 20110716
  Receipt Date: 20110706
  Transmission Date: 20111222
  Serious: Yes (Hospitalization, Other)
  Sender: FDA-Public Use
  Company Number: US-ASTRAZENECA-2011SE34179

PATIENT
  Age: 57 Year
  Sex: Female
  Weight: 122.5 kg

DRUGS (24)
  1. ATACAND [Suspect]
     Route: 048
     Dates: start: 20110111
  2. LEVOTHYROXINE [Concomitant]
     Indication: THYROID DISORDER
  3. LORAZEPAM [Concomitant]
     Indication: ANXIETY POSTOPERATIVE
  4. SIMVASTATIN [Concomitant]
     Indication: HYPERCHOLESTEROLAEMIA
  5. NITROSTAT [Concomitant]
     Indication: ANGINA PECTORIS
     Dosage: 0.4 MG 0-5 DAILY AS NEEDED
  6. METOPROLOL TARTRATE [Suspect]
  7. ASPIRIN [Concomitant]
     Indication: CARDIAC DISORDER
  8. ASPIRIN [Concomitant]
  9. ANUSOL HC [Concomitant]
     Indication: PAIN
     Dosage: 1 AS NEEDED
  10. LISINOPRIL [Suspect]
     Route: 048
  11. RANEXA [Concomitant]
     Indication: ANGINA PECTORIS
  12. ASPIRIN [Concomitant]
  13. GOLYTELY [Concomitant]
     Indication: GASTROINTESTINAL PAIN
     Dosage: 1 CONTAINER IN SOLUTION EVERY TWO WEEKS
  14. OMEPRAZOLE [Concomitant]
     Indication: BARRETT'S OESOPHAGUS
     Route: 048
  15. OMEPRAZOLE [Concomitant]
     Indication: GASTROOESOPHAGEAL REFLUX DISEASE
     Route: 048
  16. ASPIRIN [Concomitant]
     Indication: PAIN
  17. LORAZEPAM [Concomitant]
     Indication: PROCEDURAL PAIN
  18. ANUSOL HC [Concomitant]
     Indication: HAEMORRHAGE
     Dosage: 1 AS NEEDED
  19. ATACAND [Suspect]
     Route: 048
     Dates: start: 20101109, end: 20101129
  20. ATENOLOL [Suspect]
     Route: 048
  21. ATACAND [Suspect]
     Route: 048
     Dates: start: 20101019
  22. HYDROCODONE [Concomitant]
     Indication: PAIN
     Dosage: 5/325 MG 4 TIMES A DAY
  23. HYDROCODONE [Concomitant]
     Indication: SLEEP DISORDER
     Dosage: 5/325 MG 4 TIMES A DAY
  24. FENTANYL [Suspect]
     Route: 048

REACTIONS (18)
  - BRADYCARDIA [None]
  - BLOOD COUNT ABNORMAL [None]
  - LACTOSE INTOLERANCE [None]
  - PRURITUS [None]
  - DYSPNOEA [None]
  - COUGH [None]
  - CEREBROVASCULAR ACCIDENT [None]
  - COLITIS ULCERATIVE [None]
  - DIARRHOEA [None]
  - HOSPITALISATION [None]
  - DRUG HYPERSENSITIVITY [None]
  - ANGINA PECTORIS [None]
  - RENAL DISORDER [None]
  - ABDOMINAL PAIN [None]
  - FLATULENCE [None]
  - DEHYDRATION [None]
  - ABDOMINAL DISTENSION [None]
  - HYPOTENSION [None]
